FAERS Safety Report 15594071 (Version 49)
Quarter: 2024Q2

REPORT INFORMATION
  Report Type: Report from Study
  Country: CA (occurrence: CA)
  Receive Date: 20181107
  Receipt Date: 20240514
  Transmission Date: 20240716
  Serious: Yes (Hospitalization, Other)
  Sender: FDA-Public Use
  Company Number: PHHY2018CA111755

PATIENT
  Age: 22 Year
  Sex: Female

DRUGS (44)
  1. ILARIS [Suspect]
     Active Substance: CANAKINUMAB
     Indication: Still^s disease
     Dosage: 240 MG, EVERY 4 WEEKS
     Route: 058
     Dates: start: 20180905
  2. ILARIS [Suspect]
     Active Substance: CANAKINUMAB
     Dosage: 300 MG, QMO
     Route: 058
     Dates: start: 20180905
  3. ILARIS [Suspect]
     Active Substance: CANAKINUMAB
     Dosage: UNK
     Route: 065
  4. ILARIS [Suspect]
     Active Substance: CANAKINUMAB
     Dosage: 300 MG,  EVERY 4 WEEKS
     Route: 058
     Dates: start: 20181003
  5. ILARIS [Suspect]
     Active Substance: CANAKINUMAB
     Dosage: 300 MG,  EVERY 4 WEEKS
     Route: 058
     Dates: start: 20181031
  6. ILARIS [Suspect]
     Active Substance: CANAKINUMAB
     Dosage: 300 MG,  EVERY 4 WEEKS
     Route: 058
     Dates: start: 20181129
  7. ILARIS [Suspect]
     Active Substance: CANAKINUMAB
     Dosage: 300 MG,  EVERY 4 WEEKS
     Route: 058
     Dates: start: 20190221
  8. ILARIS [Suspect]
     Active Substance: CANAKINUMAB
     Dosage: 300 MG,  EVERY 4 WEEKS
     Route: 058
     Dates: start: 20190503
  9. ILARIS [Suspect]
     Active Substance: CANAKINUMAB
     Dosage: 300 MG,  EVERY 4 WEEKS
     Route: 058
     Dates: start: 20190531
  10. ILARIS [Suspect]
     Active Substance: CANAKINUMAB
     Dosage: 300 MG, EVERY 4 WEEKS
     Route: 058
     Dates: start: 20190628
  11. ILARIS [Suspect]
     Active Substance: CANAKINUMAB
     Dosage: 300 MG, EVERY 4 WEEKS
     Route: 058
     Dates: start: 20190729
  12. ILARIS [Suspect]
     Active Substance: CANAKINUMAB
     Dosage: 150 MG, EVERY 4 WEEKS
     Route: 058
     Dates: start: 20190919
  13. ILARIS [Suspect]
     Active Substance: CANAKINUMAB
     Dosage: 240 MG, EVERY 4 WEEKS
     Route: 058
     Dates: start: 20191213
  14. ILARIS [Suspect]
     Active Substance: CANAKINUMAB
     Dosage: 240 MG,. EVERY 4 WEEKS
     Route: 058
  15. ILARIS [Suspect]
     Active Substance: CANAKINUMAB
     Dosage: 240 MG, EVERY 4 WEEKS
     Route: 058
     Dates: start: 20200114
  16. ILARIS [Suspect]
     Active Substance: CANAKINUMAB
     Dosage: 240 MG, EVERY 4 WEEKS
     Route: 058
     Dates: start: 20200310
  17. ILARIS [Suspect]
     Active Substance: CANAKINUMAB
     Dosage: 240 MG, EVERY 4 WEEKS
     Route: 058
     Dates: start: 20200430
  18. ILARIS [Suspect]
     Active Substance: CANAKINUMAB
     Dosage: UNK
     Route: 065
     Dates: start: 20200922
  19. ILARIS [Suspect]
     Active Substance: CANAKINUMAB
     Dosage: UNK
     Route: 065
     Dates: start: 20210208
  20. ILARIS [Suspect]
     Active Substance: CANAKINUMAB
     Dosage: 215 MG, EVERY 4 WEEKS
     Route: 065
     Dates: start: 20210505
  21. ILARIS [Suspect]
     Active Substance: CANAKINUMAB
     Dosage: 150 MG, EVERY 4 WEEKS
     Route: 058
  22. ILARIS [Suspect]
     Active Substance: CANAKINUMAB
     Dosage: 100 MG
     Route: 058
     Dates: start: 202301
  23. ILARIS [Suspect]
     Active Substance: CANAKINUMAB
     Dosage: 100 MG, Q 4 TO 6 WEEKS
     Route: 058
     Dates: start: 20230310
  24. ILARIS [Suspect]
     Active Substance: CANAKINUMAB
     Dosage: 100 MG, 4 TO 8 WEEKS, (VIALS)
     Route: 058
  25. ILARIS [Suspect]
     Active Substance: CANAKINUMAB
     Dosage: 187 MG (4 TO 8 WEEKS)
     Route: 058
  26. ILARIS [Suspect]
     Active Substance: CANAKINUMAB
     Dosage: 212 MG
     Route: 065
     Dates: start: 20231117
  27. ILARIS [Suspect]
     Active Substance: CANAKINUMAB
     Dosage: 600 MG, QMO
     Route: 058
     Dates: start: 20180905
  28. ILARIS [Suspect]
     Active Substance: CANAKINUMAB
     Dosage: 150 MG, Q2W
     Route: 065
  29. ILARIS [Suspect]
     Active Substance: CANAKINUMAB
     Dosage: 300 MG, QMO
     Route: 065
     Dates: start: 20240508
  30. ILARIS [Suspect]
     Active Substance: CANAKINUMAB
     Dosage: 150 MG, Q2W
     Route: 065
  31. ACTEMRA [Concomitant]
     Active Substance: TOCILIZUMAB
     Indication: Product used for unknown indication
     Dosage: UNK, UNKNOWN
     Route: 065
  32. METHOTREXATE [Concomitant]
     Active Substance: METHOTREXATE
     Indication: Product used for unknown indication
     Dosage: UNK
     Route: 065
  33. METHOTREXATE [Concomitant]
     Active Substance: METHOTREXATE
     Dosage: 1 DOSAGE FORM, QW
     Route: 065
     Dates: start: 201905, end: 201907
  34. CALCIUM [Concomitant]
     Active Substance: CALCIUM
     Indication: Product used for unknown indication
     Dosage: 500 MG
     Route: 065
  35. DEXILANT [Concomitant]
     Active Substance: DEXLANSOPRAZOLE
     Indication: Product used for unknown indication
     Dosage: 60 MG
     Route: 065
  36. DEXILANT [Concomitant]
     Active Substance: DEXLANSOPRAZOLE
     Dosage: 60 MG, BID
     Route: 065
  37. PREDNISONE [Concomitant]
     Active Substance: PREDNISONE
     Indication: Product used for unknown indication
     Dosage: UNK, 1/2 CO FOR 4 DAYS
     Route: 065
  38. PREDNISONE [Concomitant]
     Active Substance: PREDNISONE
     Dosage: UNK, 1CO 1/2 OF 5 MG DIE
     Route: 065
  39. PREDNISONE [Concomitant]
     Active Substance: PREDNISONE
     Dosage: 5 MG, HS
     Route: 065
  40. PREDNISONE [Concomitant]
     Active Substance: PREDNISONE
     Dosage: 7.5 MG, SINCE 2 WEEKS DIE
     Route: 065
  41. PREDNISONE [Concomitant]
     Active Substance: PREDNISONE
     Dosage: UNK UNK, QD
     Route: 048
     Dates: start: 202104
  42. PREDNISONE [Concomitant]
     Active Substance: PREDNISONE
     Dosage: 7.5 MG, QD
     Route: 048
     Dates: start: 202104
  43. FLEXERIL [Concomitant]
     Active Substance: CYCLOBENZAPRINE HYDROCHLORIDE
     Indication: Product used for unknown indication
     Dosage: 10 MG (1 TABLET)
     Route: 065
  44. DILAUDID [Concomitant]
     Active Substance: HYDROMORPHONE HYDROCHLORIDE
     Indication: Product used for unknown indication
     Dosage: 2 MG, QMO (1 TABLET)
     Route: 065

REACTIONS (43)
  - Pericarditis [Unknown]
  - Pneumonia [Recovering/Resolving]
  - Dermatomyositis [Unknown]
  - Osteonecrosis [Unknown]
  - Joint dislocation [Unknown]
  - Pneumonia [Recovered/Resolved]
  - Gait disturbance [Unknown]
  - Synovitis [Unknown]
  - Rib fracture [Unknown]
  - Tachycardia [Not Recovered/Not Resolved]
  - Heart rate increased [Unknown]
  - Skin plaque [Not Recovered/Not Resolved]
  - Erythema [Unknown]
  - Cough [Not Recovered/Not Resolved]
  - Arthralgia [Not Recovered/Not Resolved]
  - Blood pressure diastolic increased [Unknown]
  - Body temperature increased [Recovered/Resolved]
  - Pyrexia [Recovered/Resolved]
  - Chest pain [Not Recovered/Not Resolved]
  - Pyrexia [Recovered/Resolved]
  - Pyrexia [Recovering/Resolving]
  - Insomnia [Unknown]
  - Psychiatric symptom [Unknown]
  - Migraine [Unknown]
  - Vomiting [Unknown]
  - Pain [Unknown]
  - Skin plaque [Recovered/Resolved]
  - Fatigue [Unknown]
  - Blood pressure increased [Unknown]
  - Weight decreased [Unknown]
  - C-reactive protein increased [Unknown]
  - Adverse drug reaction [Unknown]
  - Hypersensitivity [Unknown]
  - Nasopharyngitis [Unknown]
  - Sinusitis [Not Recovered/Not Resolved]
  - Headache [Unknown]
  - Nasal congestion [Not Recovered/Not Resolved]
  - Oropharyngeal pain [Unknown]
  - Inappropriate schedule of product administration [Unknown]
  - Drug ineffective [Unknown]
  - Anaemia [Recovering/Resolving]
  - Inflammation [Recovering/Resolving]
  - Condition aggravated [Recovering/Resolving]

NARRATIVE: CASE EVENT DATE: 20180901
